FAERS Safety Report 5801052-4 (Version None)
Quarter: 2008Q3

REPORT INFORMATION
  Report Type: 
  Country: None (occurrence: None)
  Receive Date: 20080704
  Receipt Date: 20080624
  Transmission Date: 20090109
  Serious: Yes (Hospitalization, Other)
  Sender: FDA-Public Use
  Company Number: CO-ELI_LILLY_AND_COMPANY-CO200806005779

PATIENT
  Sex: Male

DRUGS (3)
  1. BYETTA [Suspect]
     Indication: DIABETES MELLITUS
     Dosage: 5 UG, UNKNOWN
     Route: 058
     Dates: start: 20080501, end: 20080616
  2. DIOVAN [Concomitant]
     Dosage: UNK, UNKNOWN
     Route: 065
  3. METOPROLOL SUCCINATE [Concomitant]
     Dosage: UNK, UNKNOWN
     Route: 065

REACTIONS (8)
  - ANXIETY [None]
  - ARRHYTHMIA [None]
  - FATIGUE [None]
  - HOSPITALISATION [None]
  - HYPERGLYCAEMIA [None]
  - HYPOTENSION [None]
  - INSOMNIA [None]
  - TACHYCARDIA [None]
